FAERS Safety Report 14972895 (Version 1)
Quarter: 2018Q2

REPORT INFORMATION
  Report Type: Spontaneous
  Country: US (occurrence: US)
  Receive Date: 20180514
  Receipt Date: 20180514
  Transmission Date: 20180711
  Serious: Yes (Hospitalization)
  Sender: FDA-Public Use
  Company Number: None

PATIENT
  Age: 59 Year
  Sex: Female
  Weight: 56.8 kg

DRUGS (1)
  1. DAPTOMYCIN 500 MG HOSPIRA [Suspect]
     Active Substance: DAPTOMYCIN
     Indication: DIVERTICULITIS
     Route: 042
     Dates: start: 20180508

REACTIONS (2)
  - Chills [None]
  - Oropharyngeal pain [None]

NARRATIVE: CASE EVENT DATE: 20180508
